FAERS Safety Report 15980903 (Version 1)
Quarter: 2019Q1

REPORT INFORMATION
  Report Type: Spontaneous
  Country: US (occurrence: US)
  Receive Date: 20190219
  Receipt Date: 20190219
  Transmission Date: 20190418
  Serious: Yes (Other)
  Sender: FDA-Public Use
  Company Number: US-PFIZER INC-2019063914

PATIENT
  Age: 78 Year
  Sex: Male
  Weight: 54.43 kg

DRUGS (2)
  1. BABY ASPIRIN [Concomitant]
     Active Substance: ASPIRIN
     Dosage: UNK
  2. XALKORI [Suspect]
     Active Substance: CRIZOTINIB
     Indication: LUNG NEOPLASM MALIGNANT
     Dosage: 250 MG, 2X/DAY (MORNING AND EVENING)
     Route: 048
     Dates: start: 2018

REACTIONS (2)
  - Osteomyelitis [Recovered/Resolved]
  - Neoplasm progression [Unknown]
